FAERS Safety Report 21672660 (Version 3)
Quarter: 2022Q4

REPORT INFORMATION
  Report Type: Spontaneous
  Country: US (occurrence: US)
  Receive Date: 20221202
  Receipt Date: 20221215
  Transmission Date: 20230112
  Serious: No
  Sender: FDA-Public Use
  Company Number: US-UNITED THERAPEUTICS-UNT-2022-028727

PATIENT
  Sex: Female

DRUGS (5)
  1. REMODULIN [Suspect]
     Active Substance: TREPROSTINIL
     Indication: Pulmonary arterial hypertension
     Dosage: UNK, CONTINUING
     Route: 058
     Dates: start: 202211
  2. REMODULIN [Suspect]
     Active Substance: TREPROSTINIL
     Dosage: 0.02257 ?G/KG, CONTINUING
     Route: 058
     Dates: start: 20221120
  3. REMODULIN [Suspect]
     Active Substance: TREPROSTINIL
     Dosage: 0.02297 ?G/KG, CONTINUING (AT A RATE OF 28 UL/HR)
     Route: 058
     Dates: start: 202211
  4. REMODULIN [Suspect]
     Active Substance: TREPROSTINIL
     Dosage: 0.02176 ?G/KG, CONTINUING (AT A RATE OF 27 UL/HR)
     Route: 058
     Dates: start: 202211
  5. REMODULIN [Suspect]
     Active Substance: TREPROSTINIL
     Indication: Pulmonary arterial hypertension
     Dosage: 0.02337 ?G/KG, CONTINUING
     Route: 058
     Dates: start: 2022

REACTIONS (14)
  - Nausea [Recovered/Resolved]
  - Diarrhoea [Unknown]
  - Back pain [Unknown]
  - Dyspnoea [Unknown]
  - Oxygen saturation decreased [Recovering/Resolving]
  - Device failure [Recovered/Resolved]
  - Device power source issue [Unknown]
  - Vomiting [Recovered/Resolved]
  - Pain [Recovered/Resolved]
  - Infusion site pain [Unknown]
  - Infusion site erythema [Unknown]
  - Device failure [Recovered/Resolved]
  - Device occlusion [Recovered/Resolved]
  - Device use issue [Recovered/Resolved]

NARRATIVE: CASE EVENT DATE: 20220101
